FAERS Safety Report 24047052 (Version 1)
Quarter: 2024Q3

REPORT INFORMATION
  Report Type: Spontaneous
  Country: US (occurrence: None)
  Receive Date: 20240703
  Receipt Date: 20240703
  Transmission Date: 20241016
  Serious: Yes (unspecified)
  Sender: Public
  Company Number: None

PATIENT
  Age: 60 Year
  Sex: Female

DRUGS (5)
  1. REPATHA [Suspect]
     Active Substance: EVOLOCUMAB
     Indication: Hypercholesterolaemia
     Dosage: 140 MG EVERY OTHER WEEK SUBCUTANEOUS
     Route: 058
     Dates: start: 20231016
  2. ASPIRIN [Concomitant]
     Active Substance: ASPIRIN
  3. MAXZIDE [Concomitant]
     Active Substance: HYDROCHLOROTHIAZIDE\TRIAMTERENE
  4. SYNTHROID [Concomitant]
     Active Substance: LEVOTHYROXINE SODIUM
  5. TRULICITY [Concomitant]
     Active Substance: DULAGLUTIDE

REACTIONS (4)
  - Diverticulitis [None]
  - Pain in extremity [None]
  - Heart rate abnormal [None]
  - Arterial occlusive disease [None]

NARRATIVE: CASE EVENT DATE: 20240626
